FAERS Safety Report 9162284 (Version 1)
Quarter: 2013Q1

REPORT INFORMATION
  Report Type: Spontaneous
  Country: SE (occurrence: None)
  Receive Date: 20130222
  Receipt Date: 20130222
  Transmission Date: 20140127
  Serious: Yes (Other)
  Sender: FDA-Public Use
  Company Number: SYM-2013-00766

PATIENT
  Age: 69 Year
  Sex: Female

DRUGS (10)
  1. ENALAPRIL MALEATE [Suspect]
     Indication: PRODUCT USED FOR UNKNOWN INDICATION
  2. SIMVASTATIN [Concomitant]
  3. CALCICHEW D3 [Concomitant]
  4. CHOLECALCIFEROL [Concomitant]
  5. ATARAX [Concomitant]
  6. PROPAVAN [Concomitant]
  7. TAMOXIFEN CITRATE [Concomitant]
  8. PLENDIL [Concomitant]
  9. ACETYLSALICYLIC ACID [Concomitant]
  10. SELOKEN ZOC [Concomitant]

REACTIONS (4)
  - Pain [None]
  - Angioedema [None]
  - Tongue oedema [None]
  - Dysphagia [None]
